FAERS Safety Report 10282081 (Version 1)
Quarter: 2014Q3

REPORT INFORMATION
  Report Type: Spontaneous
  Country: US (occurrence: US)
  Receive Date: 20140707
  Receipt Date: 20140707
  Transmission Date: 20150326
  Serious: No
  Sender: FDA-Public Use
  Company Number: US-SA-2014SA032650

PATIENT
  Age: 14 Year
  Sex: Male
  Weight: 43.9 kg

DRUGS (3)
  1. PRIFTIN [Suspect]
     Active Substance: RIFAPENTINE
     Indication: LATENT TUBERCULOSIS
     Route: 065
     Dates: start: 20140220, end: 20140220
  2. INH [Concomitant]
     Active Substance: ISONIAZID
     Route: 065
     Dates: start: 20140220, end: 20140220
  3. PYRIDOXINE HYDROCHLORIDE. [Concomitant]
     Active Substance: PYRIDOXINE HYDROCHLORIDE
     Route: 065
     Dates: start: 20140220, end: 20140220

REACTIONS (5)
  - Pruritus [Recovered/Resolved]
  - Injection site swelling [Recovered/Resolved]
  - Peripheral swelling [Recovered/Resolved]
  - Injection site erythema [Recovered/Resolved]
  - Eye oedema [Recovered/Resolved]

NARRATIVE: CASE EVENT DATE: 20140221
